FAERS Safety Report 6280057-6 (Version None)
Quarter: 2009Q3

REPORT INFORMATION
  Report Type: 
  Country: None (occurrence: None)
  Receive Date: 20090723
  Receipt Date: 20090715
  Transmission Date: 20100115
  Serious: Yes (Hospitalization)
  Sender: FDA-Public Use
  Company Number: JP-ABBOTT-09P-087-0585932-00

PATIENT
  Age: 45 Year
  Sex: Female

DRUGS (2)
  1. LEUPLIN FOR INJECTION 1.88 MG [Suspect]
     Indication: ADENOMYOSIS
     Route: 058
  2. ANTIHYPERTENSIVE [Concomitant]
     Indication: HYPERTENSION

REACTIONS (1)
  - CEREBRAL INFARCTION [None]
